FAERS Safety Report 11080829 (Version 1)
Quarter: 2015Q2

REPORT INFORMATION
  Report Type: Spontaneous
  Country: US (occurrence: None)
  Receive Date: 20150430
  Receipt Date: 20150430
  Transmission Date: 20150821
  Serious: No
  Sender: FDA-Public Use
  Company Number: None

PATIENT
  Age: 37 Year
  Sex: Female
  Weight: 58.06 kg

DRUGS (1)
  1. MIRENA [Suspect]
     Active Substance: LEVONORGESTREL
     Dates: start: 20150420, end: 20150427

REACTIONS (5)
  - Abdominal distension [None]
  - Suppressed lactation [None]
  - Muscle spasms [None]
  - Breast atrophy [None]
  - Stress [None]

NARRATIVE: CASE EVENT DATE: 20150420
